FAERS Safety Report 7297034-9 (Version None)
Quarter: 2011Q1

REPORT INFORMATION
  Report Type: 
  Country: None (occurrence: None)
  Receive Date: 20110216
  Receipt Date: 20110209
  Transmission Date: 20110831
  Serious: Yes (Hospitalization)
  Sender: FDA-Public Use
  Company Number: JP-JNJFOC-20110201468

PATIENT
  Age: 53 Year
  Sex: Male

DRUGS (1)
  1. INVEGA [Suspect]
     Indication: INTENTIONAL OVERDOSE
     Route: 048

REACTIONS (2)
  - HYPERSOMNIA [None]
  - INTENTIONAL OVERDOSE [None]
